FAERS Safety Report 22188793 (Version 1)
Quarter: 2023Q2

REPORT INFORMATION
  Report Type: Spontaneous
  Country: US (occurrence: US)
  Receive Date: 20230409
  Receipt Date: 20230409
  Transmission Date: 20230721
  Serious: No
  Sender: FDA-Public Use
  Company Number: US-JNJFOC-20230405548

PATIENT
  Age: 28 Year
  Sex: Male

DRUGS (1)
  1. CONCERTA [Suspect]
     Active Substance: METHYLPHENIDATE HYDROCHLORIDE
     Indication: Disturbance in attention
     Dosage: AS BEEN ON IT FOR 22 YEARS
     Route: 065

REACTIONS (2)
  - Product availability issue [Unknown]
  - Product dose omission issue [Unknown]
